FAERS Safety Report 15383903 (Version 1)
Quarter: 2018Q3

REPORT INFORMATION
  Report Type: Spontaneous
  Country: US (occurrence: US)
  Receive Date: 20180906
  Receipt Date: 20180906
  Transmission Date: 20181010
  Serious: Yes (Hospitalization)
  Sender: FDA-Public Use
  Company Number: None

PATIENT
  Age: 37 Year
  Sex: Male

DRUGS (3)
  1. TRUVADA [Suspect]
     Active Substance: EMTRICITABINE\TENOFOVIR DISOPROXIL FUMARATE
     Indication: HIV INFECTION
     Dosage: 200MG?300MG DAILY PO
     Route: 048
     Dates: start: 20180804
  2. SEROQUEL [Concomitant]
     Active Substance: QUETIAPINE FUMARATE
  3. LITHIUM CARB [Concomitant]
     Active Substance: LITHIUM CARBONATE

REACTIONS (1)
  - Bipolar disorder [None]

NARRATIVE: CASE EVENT DATE: 201808
